FAERS Safety Report 11307472 (Version 1)
Quarter: 2015Q3

REPORT INFORMATION
  Report Type: Spontaneous
  Country: DK (occurrence: NL)
  Receive Date: 20150723
  Receipt Date: 20150723
  Transmission Date: 20151125
  Serious: Yes (Other)
  Sender: FDA-Public Use
  Company Number: NL-FRI-1000078319

PATIENT
  Age: 46 Year
  Sex: Female
  Weight: 85 kg

DRUGS (5)
  1. SEROQUEL [Interacting]
     Active Substance: QUETIAPINE FUMARATE
     Dosage: 300 MG
     Route: 065
  2. FOSTER AEROSOL [Concomitant]
     Indication: PRODUCT USED FOR UNKNOWN INDICATION
     Route: 065
  3. SEROQUEL [Interacting]
     Active Substance: QUETIAPINE FUMARATE
     Indication: AFFECTIVE DISORDER
     Dosage: 150 MG
     Route: 065
     Dates: start: 2010
  4. SEROQUEL [Interacting]
     Active Substance: QUETIAPINE FUMARATE
     Dosage: 600 MG
     Route: 065
     Dates: start: 201504
  5. CITALOPRAM [Suspect]
     Active Substance: CITALOPRAM HYDROBROMIDE
     Indication: AFFECTIVE DISORDER
     Dosage: 20 MG
     Route: 065
     Dates: start: 2010

REACTIONS (3)
  - Urinary retention [Not Recovered/Not Resolved]
  - Drug interaction [Not Recovered/Not Resolved]
  - Product use issue [Not Recovered/Not Resolved]

NARRATIVE: CASE EVENT DATE: 201504
